FAERS Safety Report 5930707-6 (Version None)
Quarter: 2008Q4

REPORT INFORMATION
  Report Type: 
  Country: None (occurrence: None)
  Receive Date: 20081022
  Receipt Date: 20081014
  Transmission Date: 20090506
  Serious: Yes (Other)
  Sender: FDA-Public Use
  Company Number: PHHY2008JP21004

PATIENT
  Age: 76 Year
  Sex: Female

DRUGS (1)
  1. VISUDYNE [Suspect]
     Indication: POLYPOIDAL CHOROIDAL VASCULOPATHY

REACTIONS (4)
  - ANGIOGRAM ABNORMAL [None]
  - RETINAL ISCHAEMIA [None]
  - SUBRETINAL FIBROSIS [None]
  - VISUAL ACUITY REDUCED [None]
